FAERS Safety Report 7762155-0 (Version None)
Quarter: 2011Q3

REPORT INFORMATION
  Report Type: 
  Country: None (occurrence: None)
  Receive Date: 20110920
  Receipt Date: 20110901
  Transmission Date: 20111222
  Serious: Yes (Hospitalization)
  Sender: FDA-Public Use
  Company Number: US-RB-027559-11

PATIENT
  Age: 45 Year
  Sex: Female

DRUGS (1)
  1. CLEARASIL VANISHING ACNE TREATMENT CREAM [Suspect]
     Indication: PRODUCT USED FOR UNKNOWN INDICATION
     Dosage: AUGUST 4-6TH, 2011
     Route: 061

REACTIONS (7)
  - NAUSEA [None]
  - LIP SWELLING [None]
  - DEFORMITY [None]
  - DIARRHOEA [None]
  - PRURITUS [None]
  - PAIN [None]
  - GASTRIC DISORDER [None]
